FAERS Safety Report 19784719 (Version 2)
Quarter: 2021Q3

REPORT INFORMATION
  Report Type: Other
  Country: US (occurrence: US)
  Receive Date: 20210903
  Receipt Date: 20210914
  Transmission Date: 20211014
  Serious: Yes (Death)
  Sender: FDA-Public Use
  Company Number: US-ROCHE-2903641

PATIENT
  Age: 72 Year
  Sex: Female
  Weight: 91.9 kg

DRUGS (7)
  1. INSULIN GLARGINE [Concomitant]
     Active Substance: INSULIN GLARGINE
  2. FUROSEMIDE. [Concomitant]
     Active Substance: FUROSEMIDE
  3. PANTOPRAZOLE [Concomitant]
     Active Substance: PANTOPRAZOLE
  4. CELLCEPT [Suspect]
     Active Substance: MYCOPHENOLATE MOFETIL\MYCOPHENOLATE MOFETIL HYDROCHLORIDE
     Indication: MYASTHENIA GRAVIS
     Dosage: 2 TABLETS PO BID?500 MG BID INITIALLY, AT TOD AT 1000 MG BID
     Route: 048
     Dates: start: 20191115, end: 20210314
  5. ASPIRIN. [Concomitant]
     Active Substance: ASPIRIN
  6. DIGOXIN. [Concomitant]
     Active Substance: DIGOXIN
  7. ATORVASTATIN [Concomitant]
     Active Substance: ATORVASTATIN

REACTIONS (2)
  - COVID-19 pneumonia [Fatal]
  - Off label use [Fatal]

NARRATIVE: CASE EVENT DATE: 20210218
